FAERS Safety Report 18898125 (Version 1)
Quarter: 2021Q1

REPORT INFORMATION
  Report Type: Spontaneous
  Country: KR (occurrence: US)
  Receive Date: 20210213
  Receipt Date: 20210213
  Transmission Date: 20210420
  Serious: Yes (Hospitalization)
  Sender: FDA-Public Use
  Company Number: None

PATIENT
  Age: 49 Year
  Sex: Female
  Weight: 40.8 kg

DRUGS (8)
  1. TOPOTECAN [Suspect]
     Active Substance: TOPOTECAN HYDROCHLORIDE
     Dates: end: 20200627
  2. FILGRASTIM [Concomitant]
     Active Substance: FILGRASTIM
  3. CEFTRIAXONE. [Concomitant]
     Active Substance: CEFTRIAXONE
  4. TAZOPERAN [Concomitant]
  5. VORICONAZOLE. [Concomitant]
     Active Substance: VORICONAZOLE
  6. MYCAMINE [Concomitant]
     Active Substance: MICAFUNGIN SODIUM
  7. TRIAXONE [Concomitant]
  8. VIMOVO [Concomitant]
     Active Substance: ESOMEPRAZOLE MAGNESIUM\NAPROXEN

REACTIONS (6)
  - Pyrexia [None]
  - C-reactive protein increased [None]
  - Neutropenia [None]
  - Infection [None]
  - Device related infection [None]
  - Candida test positive [None]

NARRATIVE: CASE EVENT DATE: 20200627
